FAERS Safety Report 8845891 (Version 1)
Quarter: 2012Q4

REPORT INFORMATION
  Report Type: Report from Study
  Country: CI (occurrence: CI)
  Receive Date: 20121017
  Receipt Date: 20121017
  Transmission Date: 20130627
  Serious: Yes (Other)
  Sender: FDA-Public Use
  Company Number: CI-GILEAD-2012-0062764

PATIENT
  Age: 31 Year
  Sex: Female

DRUGS (5)
  1. EFAVIRENZ [Suspect]
     Indication: HIV INFECTION
     Dosage: 600 mg, QD
     Route: 048
     Dates: start: 20100506
  2. TENOFOVIR DISOPROXIL FUMARATE [Suspect]
     Indication: HIV INFECTION
     Dosage: 300 mg, QD
     Route: 048
     Dates: start: 20100506
  3. EMTRICITABINE [Suspect]
     Indication: HIV INFECTION
     Dosage: 200 mg, QD
     Route: 048
     Dates: start: 20100506
  4. SULFAMETHOXAZOLE [Concomitant]
     Dosage: UNK
     Dates: start: 20091006, end: 20110809
  5. TRIMETHOPRIM [Concomitant]
     Dosage: UNK
     Dates: start: 20091006, end: 20110809

REACTIONS (1)
  - Stillbirth [Unknown]
